FAERS Safety Report 5062291-6 (Version None)
Quarter: 2006Q3

REPORT INFORMATION
  Report Type: 
  Country: None (occurrence: None)
  Receive Date: 20060721
  Receipt Date: 20060711
  Transmission Date: 20061208
  Serious: Yes (Hospitalization, Disabling)
  Sender: FDA-Public Use
  Company Number: ST-2006-008917

PATIENT
  Age: 75 Year
  Sex: Male
  Weight: 74 kg

DRUGS (4)
  1. OLMETEC [Suspect]
     Indication: HYPERTENSION
     Dosage: 10 MG BID PO
     Route: 048
     Dates: start: 20060107, end: 20060223
  2. NORVASC [Concomitant]
  3. ARTIONE [Concomitant]
  4. ALLOZYM [Concomitant]

REACTIONS (2)
  - INTERSTITIAL LUNG DISEASE [None]
  - LYMPHOCYTE STIMULATION TEST POSITIVE [None]
